FAERS Safety Report 5734330-8 (Version None)
Quarter: 2008Q2

REPORT INFORMATION
  Report Type: 
  Country: None (occurrence: None)
  Receive Date: 20080507
  Receipt Date: 20080429
  Transmission Date: 20081010
  Serious: Yes (Hospitalization)
  Sender: FDA-Public Use
  Company Number: WAES 0803USA03145

PATIENT
  Age: 71 Year
  Sex: Female
  Weight: 68.9467 kg

DRUGS (12)
  1. VORINSTAT UNK [Suspect]
     Indication: ACUTE MYELOID LEUKAEMIA
     Dosage: 400 MG/DAILY/PO
     Route: 048
     Dates: start: 20080313, end: 20080326
  2. DOXYCYCLINE UNK [Suspect]
     Indication: ROSACEA
     Dates: end: 20080317
  3. GEMFIBROZIL [Suspect]
     Indication: HYPERLIPIDAEMIA
     Dates: end: 20080317
  4. DECITABINE  INFUSION (FORM) [Suspect]
     Indication: ACUTE MYELOID LEUKAEMIA
     Dosage: 35 MG/DAILY/IV
     Route: 042
     Dates: start: 20080308, end: 20080312
  5. DECITABINE  INFUSION (FORM) [Suspect]
     Indication: MYELODYSPLASTIC SYNDROME
     Dosage: 35 MG/DAILY/IV
     Route: 042
     Dates: start: 20080308, end: 20080312
  6. BISOPROLOL FUMARATE / HTCZ UNK [Suspect]
     Indication: HYPERTENSION
     Dates: start: 20080301
  7. LOTEMAX [Concomitant]
  8. CALCIUM (UNSPECIFIED) (+) VITAMIN [Concomitant]
  9. OMEGA-3 MARINE TRIGLYCERIDES [Concomitant]
  10. OMEPRAZOLE [Concomitant]
  11. ONDANSETRON [Concomitant]
  12. PAROXETINE HCL [Concomitant]

REACTIONS (6)
  - BUNDLE BRANCH BLOCK RIGHT [None]
  - DRUG DOSE OMISSION [None]
  - NAUSEA [None]
  - ORAL DISORDER [None]
  - SYNCOPE VASOVAGAL [None]
  - VOMITING [None]
